FAERS Safety Report 15400591 (Version 1)
Quarter: 2018Q3

REPORT INFORMATION
  Report Type: Spontaneous
  Country: FR (occurrence: FR)
  Receive Date: 20180919
  Receipt Date: 20180919
  Transmission Date: 20181010
  Serious: Yes (Hospitalization)
  Sender: FDA-Public Use
  Company Number: FR-B.I. PHARMACEUTICALS,INC./RIDGEFIELD-2016-BI-59190FF

PATIENT
  Age: 65 Year
  Sex: Female
  Weight: 47 kg

DRUGS (3)
  1. GILOTRIF [Suspect]
     Active Substance: AFATINIB
     Route: 048
     Dates: start: 20180912
  2. GILOTRIF [Suspect]
     Active Substance: AFATINIB
     Indication: LUNG NEOPLASM MALIGNANT
     Route: 048
     Dates: start: 20151010, end: 20160310
  3. GILOTRIF [Suspect]
     Active Substance: AFATINIB
     Route: 048
     Dates: start: 20160311

REACTIONS (8)
  - Weight decreased [Unknown]
  - Pigmentation disorder [Recovered/Resolved]
  - Hair texture abnormal [Not Recovered/Not Resolved]
  - Skin disorder [Not Recovered/Not Resolved]
  - Epistaxis [Recovered/Resolved]
  - Bladder prolapse [Recovered/Resolved]
  - Skin disorder [Not Recovered/Not Resolved]
  - Psoriasis [Not Recovered/Not Resolved]

NARRATIVE: CASE EVENT DATE: 2015
